FAERS Safety Report 10483547 (Version 2)
Quarter: 2014Q4

REPORT INFORMATION
  Report Type: Report from Study
  Country: BR (occurrence: BR)
  Receive Date: 20140930
  Receipt Date: 20141017
  Transmission Date: 20150528
  Serious: Yes (Other)
  Sender: FDA-Public Use
  Company Number: BR-BAYER-2014-139083

PATIENT
  Age: 60 Year
  Sex: Female

DRUGS (3)
  1. NEXAVAR [Suspect]
     Active Substance: SORAFENIB
     Indication: HEPATIC CANCER
     Dosage: 2 DF, BID
     Dates: start: 201407, end: 20140912
  2. CAPTOPRIL. [Concomitant]
     Active Substance: CAPTOPRIL
     Indication: HYPERTENSION
     Route: 048
  3. NEXAVAR [Suspect]
     Active Substance: SORAFENIB
     Indication: HEPATIC CANCER
     Dosage: 2 DF, BID
     Route: 048
     Dates: start: 20140622, end: 201407

REACTIONS (13)
  - Feeding disorder [Recovered/Resolved]
  - Nausea [Recovering/Resolving]
  - Burning sensation [Not Recovered/Not Resolved]
  - Malaise [Recovered/Resolved]
  - Bedridden [Recovered/Resolved]
  - Glossodynia [Not Recovered/Not Resolved]
  - Platelet count decreased [Recovering/Resolving]
  - Vomiting [Recovering/Resolving]
  - Blister [None]
  - Blood pressure increased [Recovered/Resolved]
  - Dizziness [Recovered/Resolved]
  - Oral discomfort [Not Recovered/Not Resolved]
  - Blister [Recovered/Resolved]

NARRATIVE: CASE EVENT DATE: 20140622
